FAERS Safety Report 15905476 (Version 1)
Quarter: 2019Q1

REPORT INFORMATION
  Report Type: Not Available
  Country: GB (occurrence: GB)
  Receive Date: 20190204
  Receipt Date: 20190204
  Transmission Date: 20190417
  Serious: Yes (Other)
  Sender: FDA-Public Use
  Company Number: GB-SYNTHON BV-NL01PV19_48225

PATIENT
  Age: 70 Year
  Sex: Male
  Weight: 89.81 kg

DRUGS (4)
  1. CANESTEN [Concomitant]
     Active Substance: CLOTRIMAZOLE
     Indication: URINARY TRACT INFECTION
     Dosage: UNK
  2. LIXIANA [Concomitant]
     Active Substance: EDOXABAN TOSYLATE
     Dosage: 60 MG, UNK
  3. TAMSULOSIN [Suspect]
     Active Substance: TAMSULOSIN
     Indication: PROSTATOMEGALY
     Dosage: 400 ?G, QD, MODIFIED RELEASE CAPSULE (HARD)
     Route: 048
     Dates: end: 20181207
  4. ANTIBIOTIC [Concomitant]
     Active Substance: UNSPECIFIED INGREDIENT
     Dosage: UNK

REACTIONS (3)
  - Myalgia [Not Recovered/Not Resolved]
  - Incontinence [Not Recovered/Not Resolved]
  - Genital pain [Unknown]

NARRATIVE: CASE EVENT DATE: 20181212
